FAERS Safety Report 24404142 (Version 1)
Quarter: 2024Q4

REPORT INFORMATION
  Report Type: Spontaneous
  Country: ES (occurrence: ES)
  Receive Date: 20241007
  Receipt Date: 20241007
  Transmission Date: 20250115
  Serious: Yes (Other)
  Sender: ROCHE
  Company Number: None

PATIENT
  Age: 69 Year
  Sex: Female

DRUGS (6)
  1. TOCILIZUMAB [Suspect]
     Active Substance: TOCILIZUMAB
     Indication: Rheumatoid arthritis
     Dosage: 4 PRE-FILLED PENS OF 0.9 ML
     Route: 058
     Dates: start: 20240705, end: 20240809
  2. ACFOL 5 mg COMPRIMIDOS , 28 comprimidos [Concomitant]
     Dosage: 28 TABLET
     Route: 048
     Dates: start: 20210429
  3. PAROXETINA VIATRIS 20 MG COMPRIMIDOS RECUBIERTOS CON PELICULA EFG, 56 [Concomitant]
     Dosage: 56 TABLETS
     Route: 048
     Dates: start: 20200909
  4. DACORTIN 2,5 mg COMPRIMIDOS, 30 comprimidos [Concomitant]
     Indication: Rheumatoid arthritis
     Route: 048
     Dates: start: 20211202
  5. LEVOTHYROXINE SODIUM [Concomitant]
     Active Substance: LEVOTHYROXINE SODIUM
     Dosage: 100 TABLETS
     Route: 048
     Dates: start: 20190329
  6. OMEPRAZOL GOBENS 20 MG CAPSULAS DURAS GASTRORRESISTENTES EFG, 28 c?psu [Concomitant]
     Route: 048
     Dates: start: 20210408

REACTIONS (1)
  - Eczema [Recovering/Resolving]

NARRATIVE: CASE EVENT DATE: 20240719
